FAERS Safety Report 17883454 (Version 1)
Quarter: 2020Q2

REPORT INFORMATION
  Report Type: Report from Study
  Country: CO (occurrence: CO)
  Receive Date: 20200611
  Receipt Date: 20200611
  Transmission Date: 20200714
  Serious: Yes (Hospitalization)
  Sender: FDA-Public Use
  Company Number: CO-UCBSA-2020023180

PATIENT
  Age: 85 Year
  Sex: Male

DRUGS (9)
  1. ROTIGOTINE [Suspect]
     Active Substance: ROTIGOTINE
     Indication: PARKINSON^S DISEASE
     Dosage: 8 MILLIGRAM, ONCE DAILY (QD)
     Route: 062
     Dates: start: 20161102
  2. LOSARTAN. [Concomitant]
     Active Substance: LOSARTAN
     Indication: HYPERTENSION
  3. CALCIUM CARBONATE. [Concomitant]
     Active Substance: CALCIUM CARBONATE
     Indication: SUPPLEMENTATION THERAPY
  4. ASA [Concomitant]
     Active Substance: ASPIRIN
     Indication: ARRHYTHMIA
  5. TRAZODONA [TRAZODONE] [Concomitant]
     Active Substance: TRAZODONE HYDROCHLORIDE
     Indication: INSOMNIA
  6. ESOMEPRAZOL [ESOMEPRAZOLE] [Concomitant]
     Active Substance: ESOMEPRAZOLE
     Indication: GASTRITIS
  7. TIAMINA [THIAMINE] [Concomitant]
     Indication: SUPPLEMENTATION THERAPY
  8. CARBIDOPA LEVODOPA [Concomitant]
     Active Substance: CARBIDOPA\LEVODOPA
     Indication: PARKINSON^S DISEASE
  9. ATORVASTATINA [ATORVASTATIN] [Concomitant]
     Active Substance: ATORVASTATIN
     Indication: ARRHYTHMIA

REACTIONS (1)
  - Malnutrition [Recovered/Resolved]

NARRATIVE: CASE EVENT DATE: 20200520
